FAERS Safety Report 9571236 (Version 2)
Quarter: 2013Q4

REPORT INFORMATION
  Report Type: Spontaneous
  Country: US (occurrence: US)
  Receive Date: 20131001
  Receipt Date: 20131001
  Transmission Date: 20140711
  Serious: Yes (Hospitalization, Disabling, Other)
  Sender: FDA-Public Use
  Company Number: US-009507513-1110USA01111

PATIENT
  Sex: Female
  Weight: 65.76 kg

DRUGS (3)
  1. FOSAMAX [Suspect]
     Indication: OSTEOPOROSIS
     Dosage: 70 MG, UNK
     Route: 048
     Dates: end: 2009
  2. ALENDRONATE SODIUM [Suspect]
     Indication: OSTEOPOROSIS
  3. FENTANYL [Concomitant]
     Indication: BACK PAIN

REACTIONS (27)
  - Femur fracture [Not Recovered/Not Resolved]
  - Femur fracture [Not Recovered/Not Resolved]
  - Intramedullary rod insertion [Unknown]
  - Intramedullary rod insertion [Unknown]
  - Spinal fusion surgery [Unknown]
  - Spinal operation [Unknown]
  - Femur fracture [Unknown]
  - Meniscus removal [Unknown]
  - Femur fracture [Not Recovered/Not Resolved]
  - Device dislocation [Unknown]
  - Spinal decompression [Unknown]
  - Femur fracture [Recovered/Resolved]
  - Femur fracture [Recovered/Resolved]
  - Depression [Unknown]
  - Meniscus injury [Unknown]
  - Bursitis [Unknown]
  - Trigger finger [Unknown]
  - Anxiety [Unknown]
  - Arthritis [Unknown]
  - Hypertension [Unknown]
  - Hypercholesterolaemia [Unknown]
  - Hypothyroidism [Unknown]
  - Osteopenia [Unknown]
  - Arthralgia [Not Recovered/Not Resolved]
  - Muscle spasms [Unknown]
  - Abdominal discomfort [Unknown]
  - Abdominal discomfort [Unknown]
